FAERS Safety Report 9057699 (Version 1)
Quarter: 2013Q1

REPORT INFORMATION
  Report Type: Spontaneous
  Country: US (occurrence: None)
  Receive Date: 20130204
  Receipt Date: 20130204
  Transmission Date: 20140127
  Serious: Yes (Hospitalization)
  Sender: FDA-Public Use
  Company Number: None

PATIENT
  Age: 66 Year
  Sex: Male
  Weight: 120.5 kg

DRUGS (1)
  1. CHLORTHALIDONE [Suspect]
     Indication: HYPERTENSION
     Route: 048
     Dates: start: 20110309, end: 20121130

REACTIONS (1)
  - Hyponatraemia [None]
